FAERS Safety Report 9083633 (Version 1)
Quarter: 2013Q1

REPORT INFORMATION
  Report Type: Report from Study
  Country: US (occurrence: US)
  Receive Date: 20130131
  Receipt Date: 20130131
  Transmission Date: 20140127
  Serious: No
  Sender: FDA-Public Use
  Company Number: US-ABBOTT-12P-163-0989883-00

PATIENT
  Sex: Male
  Weight: 61.29 kg

DRUGS (4)
  1. HUMIRA [Suspect]
     Indication: CROHN^S DISEASE
     Dates: start: 201110
  2. CIPRO (NON-ABBOTT) [Concomitant]
     Indication: FISTULA
  3. PREDNISONE (NON-ABBOTT) [Concomitant]
     Indication: CROHN^S DISEASE
  4. IMMODIUM (NON-ABBOTT) [Concomitant]
     Indication: DIARRHOEA

REACTIONS (1)
  - Pneumonia [Recovered/Resolved]
